FAERS Safety Report 4380680-X (Version None)
Quarter: 2004Q2

REPORT INFORMATION
  Report Type: 
  Country: None (occurrence: None)
  Receive Date: 20040618
  Receipt Date: 20040609
  Transmission Date: 20050107
  Serious: Yes (Hospitalization)
  Sender: FDA-Public Use
  Company Number: DE-BRISTOL-MYERS SQUIBB COMPANY-12609640

PATIENT
  Age: 65 Year
  Sex: Male

DRUGS (5)
  1. PLATINEX [Suspect]
     Indication: GASTRIC CANCER
     Dosage: DAY 15 OF CYCLE
     Route: 042
  2. FLUOROURACIL [Suspect]
     Indication: GASTRIC CANCER
     Dosage: DAY 15 OF CYCLE
     Route: 042
  3. FOLINIC ACID [Suspect]
     Indication: GASTRIC CANCER
     Dosage: DAY 15 OF CYCLE
     Route: 042
  4. SELENIUM TRACE METAL ADDITIVE [Concomitant]
     Dates: end: 20040603
  5. ESOMEPRAZOLE [Concomitant]
     Dates: end: 20040603

REACTIONS (3)
  - ABDOMINAL PAIN [None]
  - DIARRHOEA [None]
  - VOMITING [None]
